FAERS Safety Report 10176131 (Version 1)
Quarter: 2014Q2

REPORT INFORMATION
  Report Type: Spontaneous
  Country: US (occurrence: US)
  Receive Date: 20140516
  Receipt Date: 20140516
  Transmission Date: 20141212
  Serious: No
  Sender: FDA-Public Use
  Company Number: US-PFIZER INC-2014131539

PATIENT
  Age: 41 Year
  Sex: Female
  Weight: 90.7 kg

DRUGS (1)
  1. RELPAX [Suspect]
     Indication: MIGRAINE
     Dosage: 40 MG, AS NEEDED
     Dates: end: 201404

REACTIONS (4)
  - Drug effect delayed [Unknown]
  - Pain [Unknown]
  - Hypoaesthesia [Unknown]
  - Headache [Unknown]
